FAERS Safety Report 22334199 (Version 1)
Quarter: 2023Q2

REPORT INFORMATION
  Report Type: Spontaneous
  Country: BR (occurrence: BR)
  Receive Date: 20230517
  Receipt Date: 20230517
  Transmission Date: 20230721
  Serious: Yes (Hospitalization, Other)
  Sender: FDA-Public Use
  Company Number: BR-Teikoku Pharma USA-TPU2023-00307

PATIENT
  Age: 56 Year
  Sex: Female

DRUGS (2)
  1. LIDOCAINE [Suspect]
     Active Substance: LIDOCAINE
     Indication: Pain
     Route: 065
  2. LIDOCAINE [Suspect]
     Active Substance: LIDOCAINE
     Route: 061

REACTIONS (4)
  - Anaphylactic reaction [Unknown]
  - Hypersensitivity [Not Recovered/Not Resolved]
  - Blood pressure increased [Unknown]
  - Accidental exposure to product [Unknown]

NARRATIVE: CASE EVENT DATE: 20230428
